FAERS Safety Report 10100025 (Version 1)
Quarter: 2014Q2

REPORT INFORMATION
  Report Type: Spontaneous
  Country: CN (occurrence: CN)
  Receive Date: 20140423
  Receipt Date: 20140423
  Transmission Date: 20141212
  Serious: Yes (Hospitalization)
  Sender: FDA-Public Use
  Company Number: CN-SA-2014SA046562

PATIENT
  Age: 65 Year
  Sex: Female
  Weight: 55 kg

DRUGS (1)
  1. PLAVIX [Suspect]
     Indication: COAGULOPATHY
     Route: 048
     Dates: start: 20130221, end: 20130304

REACTIONS (1)
  - Leukopenia [Recovered/Resolved]
